FAERS Safety Report 19009909 (Version 11)
Quarter: 2023Q1

REPORT INFORMATION
  Report Type: Report from Study
  Country: CO (occurrence: CO)
  Receive Date: 20210315
  Receipt Date: 20230214
  Transmission Date: 20230417
  Serious: Yes (Other)
  Sender: FDA-Public Use
  Company Number: NVSC2021CO058548

PATIENT
  Sex: Female
  Weight: 64 kg

DRUGS (9)
  1. ELTROMBOPAG OLAMINE [Suspect]
     Active Substance: ELTROMBOPAG OLAMINE
     Indication: Immune thrombocytopenia
     Dosage: 2 DF, QD (50 MG)
     Route: 048
     Dates: start: 202009
  2. ELTROMBOPAG OLAMINE [Suspect]
     Active Substance: ELTROMBOPAG OLAMINE
     Dosage: 2 DF, QD
     Route: 048
  3. ELTROMBOPAG OLAMINE [Suspect]
     Active Substance: ELTROMBOPAG OLAMINE
     Dosage: 75 MG, QD
     Route: 048
  4. ELTROMBOPAG OLAMINE [Suspect]
     Active Substance: ELTROMBOPAG OLAMINE
     Dosage: 50 MG (25 MG TABLET DAILY)
     Route: 048
     Dates: start: 20210812
  5. ELTROMBOPAG OLAMINE [Suspect]
     Active Substance: ELTROMBOPAG OLAMINE
     Dosage: 50 MG, QD
     Route: 048
  6. LEVOTHYROXINE SODIUM [Concomitant]
     Active Substance: LEVOTHYROXINE SODIUM
     Indication: Hypothyroidism
     Dosage: 50 MG (MONDAY, WEDNESDAY, FRIDAY)
     Route: 048
  7. LEVOTHYROXINE SODIUM [Concomitant]
     Active Substance: LEVOTHYROXINE SODIUM
     Dosage: 75 MG (TUESDAY, THURSDAY, SATURDAY, SUNDAY)
     Route: 048
  8. CALCIUM [Concomitant]
     Active Substance: CALCIUM
     Indication: Product used for unknown indication
     Dosage: UNK, QD (ONCE DAILY)
     Route: 048
  9. VITAMIN E [Concomitant]
     Active Substance: .ALPHA.-TOCOPHEROL
     Indication: Product used for unknown indication
     Dosage: UNK, QD (ONE DAILY)
     Route: 048

REACTIONS (25)
  - Platelet count decreased [Unknown]
  - Angina pectoris [Unknown]
  - Drug intolerance [Unknown]
  - Malaise [Unknown]
  - Nasal discomfort [Unknown]
  - Sleep disorder [Unknown]
  - Dizziness [Unknown]
  - Chest discomfort [Unknown]
  - Hunger [Unknown]
  - Paraesthesia [Unknown]
  - Pain [Unknown]
  - Feeling abnormal [Unknown]
  - Memory impairment [Unknown]
  - Drug ineffective [Unknown]
  - Epistaxis [Unknown]
  - Gingival bleeding [Unknown]
  - Fear [Unknown]
  - Blood cholesterol increased [Unknown]
  - Product dose omission issue [Unknown]
  - Chest pain [Unknown]
  - Fatigue [Unknown]
  - Rash erythematous [Not Recovered/Not Resolved]
  - Breast pain [Unknown]
  - Petechiae [Not Recovered/Not Resolved]
  - Gingival bleeding [Recovered/Resolved]
